FAERS Safety Report 9009876 (Version 1)
Quarter: 2013Q1

REPORT INFORMATION
  Report Type: Spontaneous
  Country: GB (occurrence: GB)
  Receive Date: 20130110
  Receipt Date: 20130110
  Transmission Date: 20140127
  Serious: Yes (Hospitalization)
  Sender: FDA-Public Use
  Company Number: GB-BANPHARM-20120509

PATIENT
  Age: 79 Year
  Sex: Male

DRUGS (12)
  1. IBUPROFEN UNKNOWN PRODUCT [Suspect]
     Dosage: 400 MG, TID,
     Dates: start: 2001, end: 20040311
  2. ATORVASTATIN [Suspect]
     Indication: HYPERCHOLESTEROLAEMIA
     Dosage: 40 MG, QD,
     Route: 048
     Dates: start: 200311, end: 20040311
  3. AVANDIA [Suspect]
     Indication: TYPE 2 DIABETES MELLITUS
     Dosage: 8 MG, QD,
     Route: 048
     Dates: start: 200210, end: 20040316
  4. AMOXICILLIN [Concomitant]
     Dosage: 250 MG, TID,
     Dates: start: 20031120, end: 20031125
  5. CO-CODAMOL [Concomitant]
  6. DOXYCYCLINE [Concomitant]
     Dosage: 100 MG, QD,
     Dates: start: 20031128, end: 20031205
  7. GLICLAZIDE [Concomitant]
     Dosage: 80 MG, BID,
     Dates: start: 20031128, end: 20031205
  8. LEVOTHYROXINE SODIUM [Concomitant]
     Dosage: 175?G, QD
  9. METFORMIN [Concomitant]
     Dosage: 850 MG, TID,
     Dates: start: 20040311
  10. OXYBUTYNIN [Concomitant]
     Dosage: 10 MG, QD,
     Dates: start: 200311
  11. RAMIPRIL [Concomitant]
     Dosage: 2.5 MG, QD,
  12. SILDENAFIL [Concomitant]
     Dosage: 50 MG, 1 DF,

REACTIONS (7)
  - Cholelithiasis [Recovering/Resolving]
  - Jaundice [Recovered/Resolved]
  - Liver function test abnormal [Recovering/Resolving]
  - Alanine aminotransferase increased [Unknown]
  - Blood alkaline phosphatase increased [Unknown]
  - Aspartate aminotransferase increased [Recovered/Resolved]
  - Blood bilirubin increased [Unknown]
